FAERS Safety Report 9354489 (Version 2)
Quarter: 2013Q3

REPORT INFORMATION
  Report Type: Spontaneous
  Country: FR (occurrence: FR)
  Receive Date: 20130618
  Receipt Date: 20130711
  Transmission Date: 20140515
  Serious: Yes (Hospitalization)
  Sender: FDA-Public Use
  Company Number: FR-TEVA-412908ISR

PATIENT
  Age: 81 Year
  Sex: Male
  Weight: 92 kg

DRUGS (11)
  1. FUROSEMIDE TEVA 40 MG [Suspect]
     Indication: HYPERTENSION
     Dosage: 40 MILLIGRAM DAILY; SCORED TABLETS
     Route: 048
     Dates: start: 201305, end: 20130609
  2. BISOPROLOL 10 [Concomitant]
  3. SPIRONOLACTONE 25 [Concomitant]
  4. IMETH [Concomitant]
     Indication: POLYMYALGIA RHEUMATICA
  5. APROVEL150 [Concomitant]
  6. FRACTAL 10 [Concomitant]
  7. DIFFU K [Concomitant]
  8. LYSANXIA [Concomitant]
  9. PREVISCAN [Concomitant]
  10. HEMIGOXIN [Concomitant]
  11. FOLIC ACID [Concomitant]

REACTIONS (11)
  - Acute pulmonary oedema [Recovering/Resolving]
  - Pneumonia [Recovering/Resolving]
  - Cardiac failure [Unknown]
  - Dyspnoea [Unknown]
  - Pyrexia [Unknown]
  - Rales [Unknown]
  - Oxygen saturation decreased [Unknown]
  - Atrial fibrillation [Unknown]
  - Bronchitis [Unknown]
  - Somnolence [Unknown]
  - Lymphadenitis [Unknown]
